FAERS Safety Report 4837206-3 (Version None)
Quarter: 2005Q4

REPORT INFORMATION
  Report Type: 
  Country: None (occurrence: None)
  Receive Date: 20051122
  Receipt Date: 20051011
  Transmission Date: 20060501
  Serious: Yes (Death)
  Sender: FDA-Public Use
  Company Number: 051121-0001094

PATIENT
  Age: 40 Year

DRUGS (3)
  1. METHAMPHETAMINE HCL [Suspect]
     Dosage: PARN
     Dates: end: 20040101
  2. METHADONE HCL [Suspect]
     Dosage: PO
     Route: 048
     Dates: end: 20040101
  3. ALPRAZOLAM [Suspect]
     Dosage: PO
     Route: 048
     Dates: end: 20040101

REACTIONS (3)
  - CARDIAC ARREST [None]
  - POLYSUBSTANCE ABUSE [None]
  - RESPIRATORY ARREST [None]
